FAERS Safety Report 18061037 (Version 1)
Quarter: 2020Q3

REPORT INFORMATION
  Report Type: Spontaneous
  Country: JP (occurrence: JP)
  Receive Date: 20200723
  Receipt Date: 20200723
  Transmission Date: 20201103
  Serious: Yes (Hospitalization, Other)
  Sender: FDA-Public Use
  Company Number: JP-TEVA-2020-JP-1805889

PATIENT
  Age: 74 Year
  Sex: Male

DRUGS (5)
  1. ITRACONAZOLE. [Suspect]
     Active Substance: ITRACONAZOLE
     Indication: SKIN CANDIDA
     Dosage: 4 MG/KG/DAY
     Route: 065
  2. ITRACONAZOLE. [Suspect]
     Active Substance: ITRACONAZOLE
     Indication: ABSCESS FUNGAL
  3. PREDNISOLONE. [Suspect]
     Active Substance: PREDNISOLONE
     Indication: PLASMA CELL MYELOMA
     Dosage: 25?100 MG/DAY
     Route: 048
  4. METHYLPREDNISOLONE. [Suspect]
     Active Substance: METHYLPREDNISOLONE
     Indication: PLASMA CELL MYELOMA
     Dosage: PULSE THERAPY
     Route: 065
  5. ITRACONAZOLE. [Suspect]
     Active Substance: ITRACONAZOLE
     Indication: SINUSITIS FUNGAL

REACTIONS (5)
  - Drug ineffective [Unknown]
  - Steroid diabetes [Unknown]
  - Abscess fungal [Recovered/Resolved]
  - Sinusitis fungal [Not Recovered/Not Resolved]
  - Skin candida [Recovered/Resolved]
